FAERS Safety Report 21457735 (Version 1)
Quarter: 2022Q4

REPORT INFORMATION
  Report Type: Report from Study
  Country: FR (occurrence: FR)
  Receive Date: 20221014
  Receipt Date: 20221014
  Transmission Date: 20230113
  Serious: Yes (Other)
  Sender: FDA-Public Use
  Company Number: FR-SUN PHARMACEUTICAL INDUSTRIES LTD-2022R1-358904

PATIENT
  Age: 76 Year
  Sex: Female

DRUGS (1)
  1. METHOTREXATE [Suspect]
     Active Substance: METHOTREXATE
     Indication: Eczema
     Dosage: 10 MILLIGRAM, WEEKLY
     Route: 048

REACTIONS (4)
  - Lymphopenia [Unknown]
  - Amnesia [Unknown]
  - Therapeutic response decreased [Unknown]
  - Asthenia [Unknown]
